FAERS Safety Report 11752632 (Version 1)
Quarter: 2015Q4

REPORT INFORMATION
  Report Type: Report from Study
  Country: BR (occurrence: BR)
  Receive Date: 20151119
  Receipt Date: 20151119
  Transmission Date: 20160304
  Serious: Yes (Hospitalization)
  Sender: FDA-Public Use
  Company Number: BR-ROCHE-1622039

PATIENT
  Sex: Male
  Weight: 27.8 kg

DRUGS (5)
  1. COLOMYCIN [Concomitant]
     Active Substance: COLISTIN
  2. CREON [Concomitant]
     Active Substance: PANCRELIPASE AMYLASE\PANCRELIPASE LIPASE\PANCRELIPASE PROTEASE
  3. SALBUTAMOL [Concomitant]
     Active Substance: ALBUTEROL
  4. PULMOZYME [Suspect]
     Active Substance: DORNASE ALFA
     Indication: CYSTIC FIBROSIS
     Route: 065
  5. AQUADEKS [Concomitant]

REACTIONS (1)
  - Respiratory disorder [Recovered/Resolved]
